FAERS Safety Report 13822600 (Version 10)
Quarter: 2018Q2

REPORT INFORMATION
  Report Type: Report from Study
  Country: US (occurrence: BR)
  Receive Date: 20170801
  Receipt Date: 20180504
  Transmission Date: 20180711
  Serious: Yes (Life-Threatening, Other)
  Sender: FDA-Public Use
  Company Number: US-SUNOVION-2017SUN003357

PATIENT
  Age: 57 Year
  Sex: Female
  Weight: 58.3 kg

DRUGS (11)
  1. LOSARTAN. [Concomitant]
     Active Substance: LOSARTAN
     Dosage: 50 MG, UNK
  2. RISPERIDONE. [Concomitant]
     Active Substance: RISPERIDONE
     Dosage: 1 MG, UNK
  3. OMEPRAZOLE. [Concomitant]
     Active Substance: OMEPRAZOLE
     Dosage: UNK
  4. INDACATEROL AND GLYCOPYRROLATE [Suspect]
     Active Substance: GLYCOPYRROLATE\INDACATEROL MALEATE
     Indication: CHRONIC OBSTRUCTIVE PULMONARY DISEASE
     Dosage: 1 DF (110MCG + 50MCG), QD
     Route: 055
     Dates: start: 201704
  5. INDACATEROL AND GLYCOPYRROLATE [Suspect]
     Active Substance: GLYCOPYRROLATE\INDACATEROL MALEATE
     Dosage: 1 DF (110MCG + 50MCG), QD
     Route: 055
  6. INDACATEROL AND GLYCOPYRROLATE [Suspect]
     Active Substance: GLYCOPYRROLATE\INDACATEROL MALEATE
     Dosage: 1 DF (110/50 UG), UNK
     Route: 055
  7. INDACATEROL AND GLYCOPYRROLATE [Suspect]
     Active Substance: GLYCOPYRROLATE\INDACATEROL MALEATE
     Dosage: 1 110/50 UG, UNK
     Route: 055
  8. YELLOW FEVER VACCINE NOS [Suspect]
     Active Substance: YELLOW FEVER VIRUS STRAIN 17D-204 LIVE ANTIGEN
     Indication: YELLOW FEVER
     Dosage: UNK
     Route: 065
  9. QUETIAPINE. [Concomitant]
     Active Substance: QUETIAPINE
     Dosage: 25 MG, UNK
  10. RIVOTRIL [Concomitant]
     Active Substance: CLONAZEPAM
     Dosage: 2 MG, UNK
  11. AEROLIN [Concomitant]
     Active Substance: ALBUTEROL
     Dosage: UNK

REACTIONS (38)
  - Malaise [Not Recovered/Not Resolved]
  - Gastrointestinal disorder [Unknown]
  - Concomitant disease aggravated [Unknown]
  - Abdominal pain upper [Unknown]
  - Conjunctivitis [Recovered/Resolved]
  - Asthenia [Recovered/Resolved]
  - Blister [Unknown]
  - Weight increased [Unknown]
  - Liver disorder [Unknown]
  - Oral pruritus [Unknown]
  - Nausea [Unknown]
  - Pain [Unknown]
  - Gastrointestinal pain [Unknown]
  - Dyspnoea [Recovered/Resolved]
  - Dyspnoea [Recovering/Resolving]
  - Bronchitis [Unknown]
  - Emphysema [Unknown]
  - Abdominal pain [Recovered/Resolved]
  - Cough [Unknown]
  - Diarrhoea [Unknown]
  - Wrong technique in product usage process [Unknown]
  - General physical health deterioration [Unknown]
  - Anxiety [Unknown]
  - Constipation [Unknown]
  - Feeling abnormal [Unknown]
  - Rhinorrhoea [Unknown]
  - Oral pain [Recovered/Resolved]
  - Somnolence [Unknown]
  - Condition aggravated [Unknown]
  - Pyrexia [Unknown]
  - Pharyngeal inflammation [Unknown]
  - Decreased appetite [Recovered/Resolved]
  - Immunodeficiency [Unknown]
  - Discomfort [Unknown]
  - Mouth injury [Unknown]
  - Weight decreased [Not Recovered/Not Resolved]
  - Arthralgia [Recovered/Resolved]
  - Fatigue [Unknown]

NARRATIVE: CASE EVENT DATE: 20170915
